FAERS Safety Report 10610953 (Version 3)
Quarter: 2015Q4

REPORT INFORMATION
  Report Type: Spontaneous
  Country: US (occurrence: US)
  Receive Date: 20141126
  Receipt Date: 20151125
  Transmission Date: 20160304
  Serious: No
  Sender: FDA-Public Use
  Company Number: US-MALLINCKRODT-T201403415

PATIENT
  Age: 27 Year
  Sex: Female

DRUGS (3)
  1. CLONIDINE. [Suspect]
     Active Substance: CLONIDINE
     Indication: PRODUCT USED FOR UNKNOWN INDICATION
     Dosage: 79.97 MCG/DAY
     Route: 037
     Dates: start: 20141022, end: 20141113
  2. DILAUDID [Suspect]
     Active Substance: HYDROMORPHONE HYDROCHLORIDE
     Indication: PAIN
     Dosage: 250 MCG/ML AT 210.89 MCG/DAY
     Route: 037
  3. GABLOFEN [Suspect]
     Active Substance: BACLOFEN
     Indication: PRODUCT USED FOR UNKNOWN INDICATION
     Dosage: 200 MCG/ML AT 168.71.MCG /DAY
     Route: 037

REACTIONS (9)
  - Hypoaesthesia [Recovered/Resolved]
  - Implant site extravasation [Recovered/Resolved]
  - Tinnitus [Recovered/Resolved]
  - Labyrinthitis [Recovered/Resolved]
  - Off label use [Unknown]
  - Oedema [Recovered/Resolved]
  - Implant site infection [Recovered/Resolved]
  - Paraesthesia [Recovered/Resolved]
  - Device dislocation [Unknown]

NARRATIVE: CASE EVENT DATE: 20140421
